FAERS Safety Report 7414663-X (Version None)
Quarter: 2011Q2

REPORT INFORMATION
  Report Type: 
  Country: None (occurrence: None)
  Receive Date: 20110414
  Receipt Date: 20080818
  Transmission Date: 20111010
  Serious: Yes (Other)
  Sender: FDA-Public Use
  Company Number: FR-CELGENEUS-056-20785-10102739

PATIENT
  Age: 82 Year
  Sex: Female

DRUGS (3)
  1. VITAMIN K ANTAGONIST [Concomitant]
     Indication: THROMBOSIS PROPHYLAXIS
     Route: 065
  2. THALIDOMIDE [Suspect]
     Indication: MULTIPLE MYELOMA
     Dosage: 100
     Route: 048
     Dates: start: 20070415
  3. THALIDOMIDE [Suspect]
     Dosage: 50
     Route: 048
     Dates: start: 20070615, end: 20070815

REACTIONS (1)
  - LIVER DISORDER [None]
